FAERS Safety Report 20333624 (Version 3)
Quarter: 2022Q1

REPORT INFORMATION
  Report Type: Spontaneous
  Country: TR (occurrence: TR)
  Receive Date: 20220113
  Receipt Date: 20220217
  Transmission Date: 20220423
  Serious: Yes (Life-Threatening, Hospitalization)
  Sender: FDA-Public Use
  Company Number: TR-TEVA-2022-TR-1997439

PATIENT
  Age: 76 Year
  Sex: Female

DRUGS (4)
  1. RASAGILINE [Suspect]
     Active Substance: RASAGILINE
     Indication: Parkinson^s disease
     Route: 065
  2. HERBALS [Suspect]
     Active Substance: HERBALS
     Dosage: BREWED TWO TABLESPOONS OF SEEDS OF APPROXIMATELY 100G FOR 5 MINUTES IN A CUP AND DRINKED
     Route: 048
  3. BENSERAZIDE\LEVODOPA [Suspect]
     Active Substance: BENSERAZIDE\LEVODOPA
     Indication: Parkinson^s disease
     Route: 065
  4. CARBIDOPA\LEVODOPA [Suspect]
     Active Substance: CARBIDOPA\LEVODOPA
     Indication: Parkinson^s disease
     Route: 065

REACTIONS (3)
  - Coma [Recovered/Resolved with Sequelae]
  - Poisoning [Recovered/Resolved with Sequelae]
  - Serotonin syndrome [Unknown]
